FAERS Safety Report 6423308-7 (Version None)
Quarter: 2009Q4

REPORT INFORMATION
  Report Type: 
  Country: None (occurrence: None)
  Receive Date: 20091102
  Receipt Date: 20091022
  Transmission Date: 20100525
  Serious: Yes (Death)
  Sender: FDA-Public Use
  Company Number: CA-PFIZER INC-2009199980

PATIENT
  Age: 83 Year

DRUGS (21)
  1. LIPITOR [Suspect]
  2. SERTRALINE HCL [Suspect]
  3. HYDROCHLOROTHIAZIDE [Suspect]
  4. TEMAZEPAM [Suspect]
  5. NIFEDIPINE [Suspect]
  6. TERAZOSIN HCL [Suspect]
  7. IBUPROFEN [Suspect]
  8. ASPIRIN [Suspect]
  9. ALLOPURINOL [Suspect]
  10. BETASERON [Suspect]
     Dosage: UNK
     Route: 058
  11. GLYCERIN [Suspect]
  12. LACTULOSE [Suspect]
  13. METOPROLOL [Suspect]
  14. PLAVIX [Suspect]
  15. QUININE [Suspect]
  16. RAMIPRIL [Suspect]
  17. TYLENOL W/ CODEINE NO. 2 [Suspect]
  18. ROBAXACET [Suspect]
  19. ALTACE [Suspect]
  20. MOTRIN IB [Suspect]
  21. TYLENOL W/ CODEINE NO. 3 [Suspect]

REACTIONS (6)
  - ABDOMINAL PAIN [None]
  - BACK PAIN [None]
  - JAUNDICE [None]
  - MALAISE [None]
  - MUSCULOSKELETAL STIFFNESS [None]
  - PANCREATIC CARCINOMA [None]
